FAERS Safety Report 6388931-7 (Version None)
Quarter: 2009Q4

REPORT INFORMATION
  Report Type: 
  Country: None (occurrence: None)
  Receive Date: 20091005
  Receipt Date: 20090928
  Transmission Date: 20100525
  Serious: Yes (Hospitalization)
  Sender: FDA-Public Use
  Company Number: FR-MERCK-0909FRA00081

PATIENT
  Age: 71 Year
  Sex: Female

DRUGS (14)
  1. TIMOPTIC [Suspect]
     Indication: ANGLE CLOSURE GLAUCOMA
     Route: 047
     Dates: start: 20090711, end: 20090713
  2. ACETAZOLAMIDE [Suspect]
     Indication: ANGLE CLOSURE GLAUCOMA
     Route: 048
     Dates: start: 20090711, end: 20090713
  3. DEXAMETHASONE AND TOBRAMYCIN [Concomitant]
     Route: 065
  4. CEFOTAXIME SODIUM [Concomitant]
     Route: 065
  5. LEVOFLOXACIN [Concomitant]
     Route: 065
  6. FLUTICASONE PROPIONATE AND SALMETEROL XINAFOATE [Concomitant]
     Route: 065
  7. SINGULAIR [Concomitant]
     Route: 065
  8. ALBUTEROL SULFATE [Concomitant]
     Route: 065
  9. IRBESARTAN [Concomitant]
     Route: 065
  10. DIGOXIN [Concomitant]
     Route: 065
  11. RABEPRAZOLE SODIUM [Concomitant]
     Route: 065
  12. NICARDIPINE HYDROCHLORIDE [Concomitant]
     Route: 065
  13. FUROSEMIDE [Concomitant]
     Route: 065
  14. PILOCARPINE [Concomitant]
     Route: 065

REACTIONS (4)
  - ACIDOSIS [None]
  - RALES [None]
  - RESPIRATORY FAILURE [None]
  - SOMNOLENCE [None]
